FAERS Safety Report 8358295-8 (Version None)
Quarter: 2012Q2

REPORT INFORMATION
  Report Type: 
  Country: None (occurrence: None)
  Receive Date: 20120514
  Receipt Date: 20110413
  Transmission Date: 20120825
  Serious: No
  Sender: FDA-Public Use
  Company Number: US-ALEXION-A201100527

PATIENT
  Sex: Female
  Weight: 54 kg

DRUGS (6)
  1. CYTOTEC [Concomitant]
     Indication: PAIN
     Dosage: 200 MCG PRN
     Route: 048
  2. SOLIRIS [Suspect]
     Dosage: 900 MG Q2W
     Route: 042
     Dates: start: 20110426
  3. FERROUS SULFATE TAB [Concomitant]
     Indication: MINERAL SUPPLEMENTATION
     Dosage: 325 MG TID
     Route: 048
  4. SOLIRIS [Suspect]
     Indication: PAROXYSMAL NOCTURNAL HAEMOGLOBINURIA
     Dosage: 600 MG QW
     Route: 042
     Dates: start: 20110308
  5. B12-VITAMIN [Concomitant]
     Dosage: 100 MCG BID
     Route: 048
  6. FOLIC ACID [Concomitant]
     Dosage: 2 MG BID
     Route: 048

REACTIONS (1)
  - NEUTROPHIL COUNT DECREASED [None]
